FAERS Safety Report 24754372 (Version 1)
Quarter: 2024Q4

REPORT INFORMATION
  Report Type: Spontaneous
  Country: JP (occurrence: JP)
  Receive Date: 20241219
  Receipt Date: 20241219
  Transmission Date: 20250114
  Serious: Yes (Other)
  Sender: ALEXION PHARMACEUTICALS
  Company Number: JP-ASTRAZENECA-240141163_013120_P_1

PATIENT
  Age: 82 Year

DRUGS (14)
  1. DURVALUMAB [Suspect]
     Active Substance: DURVALUMAB
     Indication: Non-small cell lung cancer
     Dosage: 1500 MILLIGRAM, Q3W
  2. DURVALUMAB [Suspect]
     Active Substance: DURVALUMAB
     Dosage: 1500 MILLIGRAM, Q3W
     Route: 041
  3. DURVALUMAB [Suspect]
     Active Substance: DURVALUMAB
     Dosage: 1500 MILLIGRAM, Q3W
  4. DURVALUMAB [Suspect]
     Active Substance: DURVALUMAB
     Dosage: 1500 MILLIGRAM, Q3W
     Route: 041
  5. TREMELIMUMAB [Suspect]
     Active Substance: TREMELIMUMAB
     Indication: Non-small cell lung cancer
  6. TREMELIMUMAB [Suspect]
     Active Substance: TREMELIMUMAB
     Route: 041
  7. TREMELIMUMAB [Suspect]
     Active Substance: TREMELIMUMAB
  8. TREMELIMUMAB [Suspect]
     Active Substance: TREMELIMUMAB
     Route: 041
  9. CARBOPLATIN [Suspect]
     Active Substance: CARBOPLATIN
     Indication: Non-small cell lung cancer
     Dosage: DOSE UNKNOWN
     Route: 065
  10. CARBOPLATIN [Suspect]
     Active Substance: CARBOPLATIN
     Dosage: DOSE UNKNOWN
     Route: 065
  11. CARBOPLATIN [Suspect]
     Active Substance: CARBOPLATIN
     Dosage: DOSE UNKNOWN
     Route: 065
  12. CARBOPLATIN [Suspect]
     Active Substance: CARBOPLATIN
     Dosage: DOSE UNKNOWN
     Route: 065
  13. PACLITAXEL [Concomitant]
     Active Substance: PACLITAXEL
     Indication: Non-small cell lung cancer
     Dosage: DOSE UNKNOWN
     Route: 065
  14. PACLITAXEL [Concomitant]
     Active Substance: PACLITAXEL
     Dosage: DOSE UNKNOWN
     Route: 065

REACTIONS (3)
  - Embolism [Unknown]
  - Eastern Cooperative Oncology Group performance status worsened [Unknown]
  - Decreased appetite [Unknown]
